FAERS Safety Report 8074335-8 (Version None)
Quarter: 2012Q1

REPORT INFORMATION
  Report Type: 
  Country: None (occurrence: None)
  Receive Date: 20120126
  Receipt Date: 20120113
  Transmission Date: 20120608
  Serious: Yes (Hospitalization, Disabling)
  Sender: FDA-Public Use
  Company Number: GB-MYLANLABS-2012S1001022

PATIENT
  Age: 81 Year
  Sex: Male
  Weight: 61.7 kg

DRUGS (8)
  1. LAXIDO [Concomitant]
     Dates: start: 20111116, end: 20111117
  2. GABAPENTIN [Suspect]
     Indication: PRODUCT USED FOR UNKNOWN INDICATION
     Dates: start: 20110601
  3. METFORMIN HCL [Concomitant]
     Indication: PRODUCT USED FOR UNKNOWN INDICATION
     Dates: start: 20110919, end: 20120104
  4. WARFARIN SODIUM [Concomitant]
     Indication: PRODUCT USED FOR UNKNOWN INDICATION
     Dates: start: 20110919, end: 20120104
  5. CLARITHROMYCIN [Concomitant]
     Indication: PRODUCT USED FOR UNKNOWN INDICATION
     Dates: start: 20111221, end: 20111228
  6. DIGOXIN [Concomitant]
     Indication: PRODUCT USED FOR UNKNOWN INDICATION
     Dates: start: 20111212
  7. LAXIDO [Concomitant]
     Indication: PRODUCT USED FOR UNKNOWN INDICATION
     Dates: start: 20111006, end: 20111007
  8. LAXIDO [Concomitant]
     Dates: start: 20111207, end: 20111208

REACTIONS (3)
  - CEREBRAL INFARCTION [None]
  - SEDATION [None]
  - CONFUSIONAL STATE [None]
